FAERS Safety Report 4444818-8 (Version None)
Quarter: 2004Q3

REPORT INFORMATION
  Report Type: 
  Country: None (occurrence: None)
  Receive Date: 20040903
  Receipt Date: 20040820
  Transmission Date: 20050211
  Serious: No
  Sender: FDA-Public Use
  Company Number: 2004AP04380

PATIENT
  Age: 77 Year
  Sex: Male

DRUGS (11)
  1. IRESSA [Suspect]
     Indication: NON-SMALL CELL LUNG CANCER
     Dosage: 250 MG DAILY PO
     Route: 048
     Dates: start: 20040310, end: 20040818
  2. CORDARONE [Concomitant]
  3. ACETYLSALICYLIC ACID [Concomitant]
  4. ACETAMINOPHEN [Concomitant]
  5. ZURCALE [Concomitant]
  6. IMODIUM ^JANSSEN^ [Concomitant]
  7. LORMETAZEPAM [Concomitant]
  8. GEMCITABINE [Concomitant]
  9. PLATINOL [Concomitant]
  10. TAXOTERE [Concomitant]
  11. RADIOTHERAPY [Concomitant]

REACTIONS (2)
  - CORNEAL EROSION [None]
  - PAPILLOEDEMA [None]
